FAERS Safety Report 5662969-7 (Version None)
Quarter: 2008Q1

REPORT INFORMATION
  Report Type: 
  Country: None (occurrence: None)
  Receive Date: 20080313
  Receipt Date: 20080305
  Transmission Date: 20080703
  Serious: Yes (Death, Other)
  Sender: FDA-Public Use
  Company Number: US-PURDUE-USA_2008_0031913

PATIENT
  Age: 16 Year
  Sex: Male

DRUGS (3)
  1. OXYCONTIN [Suspect]
     Indication: DRUG ABUSE
     Dosage: UNK MG, UNK
     Route: 048
  2. ALCOHOL [Suspect]
     Indication: DRUG ABUSE
     Dosage: UNK ML, UNK
     Route: 048
  3. COCAINE [Suspect]
     Indication: DRUG ABUSE
     Dosage: UNK MG, UNK

REACTIONS (2)
  - ROAD TRAFFIC ACCIDENT [None]
  - SUBSTANCE ABUSE [None]
